FAERS Safety Report 5352482-9 (Version None)
Quarter: 2007Q2

REPORT INFORMATION
  Report Type: 
  Country: None (occurrence: None)
  Receive Date: 20070611
  Receipt Date: 20070606
  Transmission Date: 20071010
  Serious: Yes (Hospitalization)
  Sender: FDA-Public Use
  Company Number: B0474068A

PATIENT
  Age: 62 Year
  Sex: Female
  Weight: 44 kg

DRUGS (9)
  1. VALTREX [Suspect]
     Indication: HERPES ZOSTER
     Dosage: 1000MG SEE DOSAGE TEXT
     Route: 048
     Dates: start: 20070531, end: 20070601
  2. NITRODERM [Concomitant]
     Route: 062
  3. MYSLEE [Concomitant]
     Route: 048
  4. MEPTIN [Concomitant]
     Route: 055
  5. FUROSEMIDE [Concomitant]
     Route: 048
  6. HOKUNALIN [Concomitant]
     Route: 062
  7. SODIUM BICARBONATE [Concomitant]
     Route: 048
  8. NORVASC [Concomitant]
     Route: 048
  9. ARTIST [Concomitant]
     Route: 048

REACTIONS (1)
  - PSYCHIATRIC SYMPTOM [None]
